FAERS Safety Report 7112825-2 (Version None)
Quarter: 2010Q4

REPORT INFORMATION
  Report Type: 
  Country: None (occurrence: None)
  Receive Date: 20101119
  Receipt Date: 20101110
  Transmission Date: 20110411
  Serious: Yes (Hospitalization)
  Sender: FDA-Public Use
  Company Number: CA-JNJFOC-20101104297

PATIENT
  Sex: Female

DRUGS (11)
  1. REMICADE [Suspect]
     Indication: CROHN'S DISEASE
     Dosage: LAST INFUSION 20-SEP-2010
     Route: 042
  2. REMICADE [Suspect]
     Route: 042
  3. FOLIC ACID [Concomitant]
  4. PREVACID [Concomitant]
  5. METHOTREXATE [Concomitant]
  6. RESTORIL [Concomitant]
  7. CODEINE [Concomitant]
  8. DEMEROL [Concomitant]
  9. DIOVAN [Concomitant]
  10. GABAPENTIN [Concomitant]
  11. TRAZODONE HCL [Concomitant]

REACTIONS (1)
  - JOINT ARTHROPLASTY [None]
